FAERS Safety Report 9368889 (Version 1)
Quarter: 2013Q2

REPORT INFORMATION
  Report Type: Spontaneous
  Country: FR (occurrence: FR)
  Receive Date: 20130626
  Receipt Date: 20130626
  Transmission Date: 20140414
  Serious: Yes (Hospitalization)
  Sender: FDA-Public Use
  Company Number: FR-ASTRAZENECA-2013SE47283

PATIENT
  Age: 14948 Day
  Sex: Female
  Weight: 98 kg

DRUGS (6)
  1. XEROQUEL [Suspect]
     Route: 048
     Dates: start: 201303
  2. UNSPECIFIED CONTRACEPTIVE [Suspect]
     Route: 048
  3. LAMICTAL [Concomitant]
     Route: 048
  4. CYMBALTA [Concomitant]
     Route: 048
  5. SEROPLEX [Concomitant]
     Route: 048
  6. IMOVANE [Concomitant]
     Route: 048

REACTIONS (3)
  - Pulmonary embolism [Recovered/Resolved]
  - Alkalosis [None]
  - Atelectasis [None]
